FAERS Safety Report 19756566 (Version 2)
Quarter: 2021Q3

REPORT INFORMATION
  Report Type: Report from Study
  Country: LB (occurrence: LB)
  Receive Date: 20210827
  Receipt Date: 20210916
  Transmission Date: 20211014
  Serious: Yes (Hospitalization)
  Sender: FDA-Public Use
  Company Number: NVSC2020LB286996

PATIENT
  Age: 13 Year
  Sex: Female
  Weight: 56 kg

DRUGS (2)
  1. YASMIN [Concomitant]
     Active Substance: DROSPIRENONE\ETHINYL ESTRADIOL
     Indication: PRODUCT USED FOR UNKNOWN INDICATION
     Dosage: UNK
     Route: 065
  2. REVOLADE [Suspect]
     Active Substance: ELTROMBOPAG OLAMINE
     Indication: IMMUNE THROMBOCYTOPENIA
     Dosage: 50 MG, QD (INTERRUPTED AROUND BEGINNING OF OCTOBER)
     Route: 048
     Dates: start: 20200727, end: 202010

REACTIONS (7)
  - Uterine haemorrhage [Recovered/Resolved]
  - Chest pain [Recovered/Resolved]
  - Thrombocytopenia [Recovering/Resolving]
  - Product dose omission issue [Unknown]
  - Petechiae [Recovering/Resolving]
  - Petechiae [Recovered/Resolved]
  - Fatigue [Unknown]

NARRATIVE: CASE EVENT DATE: 202010
